FAERS Safety Report 7912072-8 (Version None)
Quarter: 2011Q4

REPORT INFORMATION
  Report Type: 
  Country: None (occurrence: None)
  Receive Date: 20111114
  Receipt Date: 20111103
  Transmission Date: 20120403
  Serious: Yes (Other)
  Sender: FDA-Public Use
  Company Number: FR-GENZYME-CERZ-1002299

PATIENT

DRUGS (2)
  1. CEREZYME [Suspect]
     Indication: GAUCHER'S DISEASE
     Dosage: 2400 IU, Q2W
     Route: 042
     Dates: start: 20050101
  2. CEREZYME [Suspect]
     Dosage: 80 IU/KG, UNK
     Route: 042
     Dates: start: 20050101

REACTIONS (2)
  - MYOCLONIC EPILEPSY [None]
  - TONIC CONVULSION [None]
